FAERS Safety Report 8760190 (Version 2)
Quarter: 2012Q4

REPORT INFORMATION
  Report Type: 
  Country: CA (occurrence: CA)
  Receive Date: 20120829
  Receipt Date: 20120913
  Transmission Date: 20130627
  Serious: Yes (Hospitalization, Other)
  Sender: FDA-Public Use
  Company Number: CA-AMGEN-CANSP2012043030

PATIENT
  Age: 49 Year
  Sex: Female
  Weight: 70.1 kg

DRUGS (2)
  1. NEULASTA [Suspect]
     Indication: BREAST CANCER STAGE II
     Dosage: 6 mg, one time dose
     Route: 058
     Dates: start: 20120626, end: 20120626
  2. ONDANSETRON [Concomitant]
     Indication: PROPHYLAXIS OF NAUSEA AND VOMITING
     Dosage: 8 mg, one time dose
     Route: 048
     Dates: start: 20120625, end: 20120626

REACTIONS (11)
  - Throat tightness [Recovered/Resolved]
  - Dizziness [Recovered/Resolved]
  - Chest discomfort [Recovered/Resolved]
  - Heart rate increased [Recovered/Resolved]
  - Blood pressure increased [Recovered/Resolved]
  - Chills [Recovered/Resolved]
  - Palpitations [Recovered/Resolved]
  - Syncope [Recovered/Resolved]
  - White blood cell count increased [Unknown]
  - Hypersensitivity [Recovered/Resolved]
  - Flushing [Recovered/Resolved]
